FAERS Safety Report 12965821 (Version 1)
Quarter: 2016Q4

REPORT INFORMATION
  Report Type: Spontaneous
  Country: ES (occurrence: ES)
  Receive Date: 20161122
  Receipt Date: 20161122
  Transmission Date: 20170207
  Serious: Yes (Hospitalization)
  Sender: FDA-Public Use
  Company Number: ES-NOVOPROD-516720

PATIENT
  Age: 75 Year
  Sex: Male
  Weight: 65 kg

DRUGS (3)
  1. TRESIBA [Suspect]
     Active Substance: INSULIN DEGLUDEC
     Indication: TYPE 2 DIABETES MELLITUS
     Dosage: MORNINGS 70-0-0 QD
     Route: 065
     Dates: start: 20160928
  2. LEVEMIR [Suspect]
     Active Substance: INSULIN DETEMIR
     Indication: TYPE 2 DIABETES MELLITUS
     Dosage: 0-0-56
     Route: 065
     Dates: start: 201607
  3. LEVEMIR [Suspect]
     Active Substance: INSULIN DETEMIR
     Dosage: 62-0-46
     Route: 065
     Dates: end: 20160928

REACTIONS (4)
  - Diabetic ketoacidosis [Recovered/Resolved]
  - Acute kidney injury [Unknown]
  - Drug ineffective [Unknown]
  - Ascites [Unknown]

NARRATIVE: CASE EVENT DATE: 20160929
